FAERS Safety Report 11612279 (Version 2)
Quarter: 2015Q4

REPORT INFORMATION
  Report Type: Report from Study
  Country: US (occurrence: US)
  Receive Date: 20151008
  Receipt Date: 20151015
  Transmission Date: 20160304
  Serious: Yes (Hospitalization, Other)
  Sender: FDA-Public Use
  Company Number: US-ABBVIE-15K-163-1475235-00

PATIENT
  Age: 15 Year
  Sex: Male

DRUGS (3)
  1. PREDNISONE. [Concomitant]
     Active Substance: PREDNISONE
     Indication: PRODUCT USED FOR UNKNOWN INDICATION
  2. ENTOCORT [Concomitant]
     Active Substance: BUDESONIDE
     Indication: PRODUCT USED FOR UNKNOWN INDICATION
  3. HUMIRA [Suspect]
     Active Substance: ADALIMUMAB
     Indication: COLITIS ULCERATIVE
     Route: 065
     Dates: start: 201509

REACTIONS (9)
  - Haematocrit decreased [Recovered/Resolved]
  - Haemorrhage [Recovered/Resolved]
  - Blood uric acid decreased [Unknown]
  - Blood iron decreased [Unknown]
  - Blood glucose increased [Unknown]
  - Colitis ulcerative [Recovered/Resolved]
  - Haemoglobin decreased [Recovered/Resolved]
  - Pallor [Recovered/Resolved]
  - Blood albumin decreased [Unknown]

NARRATIVE: CASE EVENT DATE: 201509
